FAERS Safety Report 7050504-0 (Version None)
Quarter: 2010Q4

REPORT INFORMATION
  Report Type: 
  Country: None (occurrence: None)
  Receive Date: 20101018
  Receipt Date: 20090904
  Transmission Date: 20110411
  Serious: Yes (Hospitalization, Other)
  Sender: FDA-Public Use
  Company Number: CHPA2009US18294

PATIENT
  Age: 57 Year
  Sex: Female

DRUGS (1)
  1. DOAN'S EXTRA STRENGTH PILLS (NCH) [Suspect]
     Indication: BACK PAIN
     Dosage: 1160 MG, ONCE/SINGLE
     Route: 048
     Dates: start: 20090903, end: 20090903

REACTIONS (1)
  - VOMITING [None]
